FAERS Safety Report 6115352-4 (Version None)
Quarter: 2009Q1

REPORT INFORMATION
  Report Type: 
  Country: None (occurrence: None)
  Receive Date: 20090313
  Receipt Date: 20090306
  Transmission Date: 20090719
  Serious: Yes (Hospitalization)
  Sender: FDA-Public Use
  Company Number: DE-JNJFOC-20090206271

PATIENT
  Age: 61 Year
  Sex: Male

DRUGS (10)
  1. RISPERDAL [Suspect]
     Route: 048
  2. RISPERDAL [Suspect]
     Route: 048
  3. RISPERDAL [Suspect]
     Indication: DRUG USE FOR UNKNOWN INDICATION
     Route: 048
  4. ERGENYL [Concomitant]
     Route: 048
  5. ERGENYL [Concomitant]
     Route: 048
  6. ATACAND [Concomitant]
     Indication: HYPERTENSION
     Route: 048
  7. ATACAND HCT [Concomitant]
     Indication: HYPERTENSION
     Route: 048
  8. KALINOR [Concomitant]
     Route: 048
  9. KALINOR [Concomitant]
     Route: 048
  10. ZOPICLON [Concomitant]
     Route: 048

REACTIONS (3)
  - ARTERIOSCLEROSIS [None]
  - OEDEMA [None]
  - SENSORY LOSS [None]
